FAERS Safety Report 7950205-8 (Version None)
Quarter: 2011Q4

REPORT INFORMATION
  Report Type: 
  Country: None (occurrence: None)
  Receive Date: 20111130
  Receipt Date: 20111125
  Transmission Date: 20120403
  Serious: Yes (Hospitalization)
  Sender: FDA-Public Use
  Company Number: US-B.I. PHARMACEUTICALS,INC./RIDGEFIELD-2011-BP-26800BP

PATIENT
  Sex: Female

DRUGS (8)
  1. LOPRESSOR [Concomitant]
     Indication: HYPERTENSION
     Dosage: 75 MG
     Route: 048
     Dates: start: 20050101
  2. BUMETANIDE [Concomitant]
     Indication: CARDIAC FAILURE CONGESTIVE
     Dosage: 2 MG
     Route: 048
     Dates: start: 20110801
  3. KLOR-CON [Concomitant]
     Indication: MINERAL SUPPLEMENTATION
     Dosage: 40 MEQ
     Route: 048
     Dates: start: 20060101
  4. DIGOXIN [Concomitant]
     Indication: HEART RATE INCREASED
     Dosage: 0.25 MG
     Route: 048
     Dates: end: 20111123
  5. TRICOR [Concomitant]
     Indication: BLOOD CHOLESTEROL INCREASED
     Dosage: 45 MG
     Route: 048
     Dates: start: 20070101
  6. PRADAXA [Suspect]
     Indication: ATRIAL FIBRILLATION
     Dosage: 300 MG
     Route: 048
     Dates: start: 20111104
  7. AMLODIPINE [Concomitant]
     Dosage: 5 MG
     Route: 048
     Dates: start: 20110601
  8. DIOVAN [Concomitant]
     Dosage: 60 MG
     Route: 048
     Dates: start: 20090101

REACTIONS (1)
  - CARDIAC FAILURE CONGESTIVE [None]
